FAERS Safety Report 18689550 (Version 2)
Quarter: 2021Q1

REPORT INFORMATION
  Report Type: Spontaneous
  Country: US (occurrence: US)
  Receive Date: 20201231
  Receipt Date: 20210127
  Transmission Date: 20210419
  Serious: No
  Sender: FDA-Public Use
  Company Number: US-ASTRAZENECA-2020SF60912

PATIENT
  Age: 26730 Day
  Sex: Female
  Weight: 127 kg

DRUGS (2)
  1. SYMBICORT [Suspect]
     Active Substance: BUDESONIDE\FORMOTEROL FUMARATE DIHYDRATE
     Indication: ASTHMA
     Dosage: 160?4.5 MCG, 2 PUFFS, TWICE A DAY
     Route: 055
     Dates: start: 2015
  2. SYMBICORT [Suspect]
     Active Substance: BUDESONIDE\FORMOTEROL FUMARATE DIHYDRATE
     Indication: DYSPNOEA
     Dosage: 160?4.5 MCG, 2 PUFFS, TWICE A DAY
     Route: 055
     Dates: start: 2015

REACTIONS (3)
  - Taste disorder [Unknown]
  - Intentional device misuse [Unknown]
  - Device delivery system issue [Unknown]

NARRATIVE: CASE EVENT DATE: 20201130
